FAERS Safety Report 23640109 (Version 1)
Quarter: 2024Q1

REPORT INFORMATION
  Report Type: Spontaneous
  Country: GB (occurrence: GB)
  Receive Date: 20240317
  Receipt Date: 20240317
  Transmission Date: 20240409
  Serious: Yes (Other)
  Sender: FDA-Public Use
  Company Number: None

PATIENT
  Age: 49 Year
  Sex: Male
  Weight: 75.4 kg

DRUGS (7)
  1. ATORVASTATIN [Suspect]
     Active Substance: ATORVASTATIN
     Indication: Product used for unknown indication
     Dosage: ONE TO BE TAKEN EACH DAY
  2. ASPIRIN [Concomitant]
     Active Substance: ASPIRIN
     Dosage: ONCEE DAILY
  3. BISOPROLOL [Concomitant]
     Active Substance: BISOPROLOL\BISOPROLOL FUMARATE
     Dosage: ONCE DAILY
  4. ISOSORBIDE MONONITRATE [Concomitant]
     Active Substance: ISOSORBIDE MONONITRATE
     Dosage: HALF DAILY
  5. LANSOPRAZOLE [Concomitant]
     Active Substance: LANSOPRAZOLE
     Dosage: ONCE DAILY
  6. RAMIPRIL [Concomitant]
     Active Substance: RAMIPRIL
     Dosage: ONCE DAILY
  7. SILDENAFIL [Concomitant]
     Active Substance: SILDENAFIL
     Dosage: ONE TO BE TAKEN AS DIRECTED
     Dates: start: 20240219

REACTIONS (1)
  - Erectile dysfunction [Not Recovered/Not Resolved]
